FAERS Safety Report 20480944 (Version 1)
Quarter: 2022Q1

REPORT INFORMATION
  Report Type: Spontaneous
  Country: US (occurrence: None)
  Receive Date: 20220216
  Receipt Date: 20220216
  Transmission Date: 20220423
  Serious: Yes (Disabling)
  Sender: FDA-Public Use
  Company Number: None

PATIENT
  Sex: Female

DRUGS (2)
  1. INVEGA SUSTENNA [Suspect]
     Active Substance: PALIPERIDONE PALMITATE
     Indication: Paranoia
     Route: 030
  2. INVEGA SUSTENNA [Suspect]
     Active Substance: PALIPERIDONE PALMITATE
     Indication: Schizophrenia

REACTIONS (20)
  - Weight increased [None]
  - Blood prolactin increased [None]
  - Bladder disorder [None]
  - High density lipoprotein increased [None]
  - Swelling face [None]
  - Swelling of eyelid [None]
  - Nasal congestion [None]
  - Back pain [None]
  - Flank pain [None]
  - Dry mouth [None]
  - Hypoaesthesia [None]
  - Blood glucose increased [None]
  - Breast tenderness [None]
  - Dyspnoea [None]
  - Fatigue [None]
  - Asthenia [None]
  - Muscle spasms [None]
  - Anhedonia [None]
  - Loss of libido [None]
  - Therapy cessation [None]
